FAERS Safety Report 8942778 (Version 3)
Quarter: 2013Q1

REPORT INFORMATION
  Report Type: Report from Study
  Country: JP (occurrence: JP)
  Receive Date: 20121204
  Receipt Date: 20130118
  Transmission Date: 20140127
  Serious: Yes (Hospitalization, Other)
  Sender: FDA-Public Use
  Company Number: JP-009507513-1212JPN000227

PATIENT
  Age: 63 Year
  Sex: Female
  Weight: 50 kg

DRUGS (12)
  1. PEGINTRON [Suspect]
     Indication: CHRONIC HEPATITIS C
     Dosage: 0.3 MICROGRAM PER KILOGRAM,
     Route: 058
  2. PEGINTRON [Suspect]
     Dosage: 0.2 MICROGRAM PER KILOGRAM, QW
     Route: 058
     Dates: end: 20121206
  3. PEGINTRON [Suspect]
     Dosage: 0.3 MICROGRAM PER KILOGRAM, QW
     Route: 058
     Dates: start: 20121207
  4. REBETOL [Suspect]
     Indication: CHRONIC HEPATITIS C
     Dosage: 400 MG, QD
     Route: 048
     Dates: start: 20120924, end: 20121030
  5. REBETOL [Suspect]
     Dosage: 200 MG, QD
     Route: 048
     Dates: start: 20121030, end: 20121108
  6. REBETOL [Suspect]
     Dosage: 400 MG, QD
     Route: 048
     Dates: end: 20121107
  7. REBETOL [Suspect]
     Dosage: 200 MG, QD
     Route: 048
     Dates: start: 20121108, end: 20121209
  8. REBETOL [Suspect]
     Dosage: 400 MG, QD
     Route: 048
     Dates: start: 20121210
  9. TELAVIC [Suspect]
     Indication: CHRONIC HEPATITIS C
     Dosage: 1500 MG, QD
     Route: 048
     Dates: start: 20120924, end: 20121107
  10. FEBURIC [Concomitant]
     Indication: BLOOD URIC ACID INCREASED
     Dosage: 10 MG, QD, FORMULATION:POR
     Route: 048
     Dates: start: 20120924
  11. BERIZYM (ASPERGILLUS ORYZAE EXTRACT (+) CELLULASE (+) LIPASE (+) PANCR [Concomitant]
     Indication: ABDOMINAL PAIN UPPER
     Dosage: 3 G, QD, FORMULATION: GRA
     Route: 048
     Dates: start: 20120924
  12. NEXIUM [Concomitant]
     Indication: ABDOMINAL PAIN UPPER
     Dosage: 20 MG, QD
     Route: 048
     Dates: start: 20120924

REACTIONS (2)
  - Rash [Unknown]
  - Rash [Recovering/Resolving]
